FAERS Safety Report 4558128-1 (Version None)
Quarter: 2005Q1

REPORT INFORMATION
  Report Type: 
  Country: None (occurrence: None)
  Receive Date: 20050121
  Receipt Date: 20041224
  Transmission Date: 20050727
  Serious: Yes (Other)
  Sender: FDA-Public Use
  Company Number: 200413998JP

PATIENT
  Age: 61 Year
  Sex: Male

DRUGS (8)
  1. KETEK [Suspect]
     Indication: LARYNGOPHARYNGITIS
     Route: 048
     Dates: start: 20041115, end: 20041117
  2. AMLODIN [Concomitant]
     Indication: HYPERTENSION
     Route: 048
     Dates: start: 20040618
  3. FAD [Concomitant]
     Indication: STOMATITIS
     Route: 048
     Dates: start: 20041115, end: 20041122
  4. CLARITIN [Concomitant]
     Indication: HYPERSENSITIVITY
     Route: 048
     Dates: start: 20041115, end: 20041129
  5. MUCODYNE [Concomitant]
     Indication: SINUSITIS
     Route: 048
     Dates: start: 20041115, end: 20041117
  6. CALONAL [Concomitant]
     Indication: LARYNGOPHARYNGITIS
     Route: 048
     Dates: start: 20041115, end: 20041117
  7. TROXSIN [Concomitant]
     Indication: GASTROINTESTINAL MUCOSAL DISORDER
     Route: 048
     Dates: start: 20041115, end: 20041117
  8. TROXSIN [Concomitant]
     Indication: PROPHYLAXIS
     Route: 048
     Dates: start: 20041115, end: 20041117

REACTIONS (5)
  - ANKLE FRACTURE [None]
  - DIZZINESS [None]
  - FALL [None]
  - FEELING ABNORMAL [None]
  - LOSS OF CONSCIOUSNESS [None]
